FAERS Safety Report 20874161 (Version 1)
Quarter: 2022Q2

REPORT INFORMATION
  Report Type: Spontaneous
  Country: CA (occurrence: CA)
  Receive Date: 20220525
  Receipt Date: 20220525
  Transmission Date: 20220721
  Serious: Yes (Other)
  Sender: FDA-Public Use
  Company Number: CA-PFIZER INC-202200731632

PATIENT
  Age: 46 Year
  Sex: Male

DRUGS (4)
  1. CELEBREX [Suspect]
     Active Substance: CELECOXIB
     Indication: Arthritis
     Dosage: 100 MG, AS NEEDED
     Route: 065
     Dates: start: 2020, end: 2021
  2. CELEBREX [Suspect]
     Active Substance: CELECOXIB
     Indication: Ankylosing spondylitis
  3. HUMIRA [Concomitant]
     Active Substance: ADALIMUMAB
     Dosage: 40 MG EVERY 2 WEEKS
     Dates: start: 202006
  4. ROBAXACET [Concomitant]
     Active Substance: ACETAMINOPHEN\METHOCARBAMOL
     Dosage: 1 DF 1X/DAY AT NIGHT
     Route: 065

REACTIONS (27)
  - Syncope [Unknown]
  - Unresponsive to stimuli [Unknown]
  - Loss of consciousness [Unknown]
  - Urticaria [Unknown]
  - Arthralgia [Recovering/Resolving]
  - Back pain [Recovering/Resolving]
  - Sacroiliitis [Unknown]
  - Muscle strain [Unknown]
  - Musculoskeletal discomfort [Unknown]
  - Abscess [Unknown]
  - Musculoskeletal stiffness [Unknown]
  - Insomnia [Unknown]
  - Musculoskeletal stiffness [Unknown]
  - Arthralgia [Recovered/Resolved]
  - Arthralgia [Recovered/Resolved]
  - Pain in extremity [Recovered/Resolved]
  - Muscle mass [Unknown]
  - Condition aggravated [Unknown]
  - Back pain [Not Recovered/Not Resolved]
  - Movement disorder [Unknown]
  - Disorientation [Unknown]
  - Hyperhidrosis [Unknown]
  - Red blood cell sedimentation rate increased [Unknown]
  - C-reactive protein increased [Unknown]
  - Night sweats [Recovered/Resolved]
  - Fall [Unknown]
  - Hypochromic anaemia [Unknown]

NARRATIVE: CASE EVENT DATE: 20210101
